FAERS Safety Report 4482161-1 (Version None)
Quarter: 2004Q4

REPORT INFORMATION
  Report Type: 
  Country: None (occurrence: None)
  Receive Date: 20041020
  Receipt Date: 20041020
  Transmission Date: 20050328
  Serious: Yes (Disabling)
  Sender: FDA-Public Use
  Company Number: None

PATIENT
  Age: 41 Year
  Sex: Male
  Weight: 117.028 kg

DRUGS (1)
  1. CIPRO XR [Suspect]
     Indication: URINARY TRACT INFECTION
     Dosage: 1000MG DAY ORAL
     Route: 048
     Dates: start: 20040804, end: 20040806

REACTIONS (8)
  - ABDOMINAL PAIN [None]
  - DIFFICULTY IN WALKING [None]
  - FATIGUE [None]
  - MUSCULAR WEAKNESS [None]
  - MYALGIA [None]
  - PAIN IN EXTREMITY [None]
  - SKIN BURNING SENSATION [None]
  - TENDON DISORDER [None]
